FAERS Safety Report 25040812 (Version 1)
Quarter: 2025Q1

REPORT INFORMATION
  Report Type: Spontaneous
  Country: HU (occurrence: HU)
  Receive Date: 20250305
  Receipt Date: 20250305
  Transmission Date: 20250409
  Serious: Yes (Hospitalization)
  Sender: ROCHE
  Company Number: HU-ROCHE-10000218575

PATIENT
  Age: 21 Year

DRUGS (2)
  1. TAMIFLU [Suspect]
     Active Substance: OSELTAMIVIR PHOSPHATE
     Indication: Influenza
     Route: 065
  2. PREDNISONE [Suspect]
     Active Substance: PREDNISONE
     Indication: Influenza
     Route: 065

REACTIONS (9)
  - Neck pain [Unknown]
  - Headache [Unknown]
  - Back pain [Unknown]
  - Dizziness [Unknown]
  - Vision blurred [Unknown]
  - Body temperature increased [Unknown]
  - Pneumonia [Unknown]
  - Inflammatory marker increased [Unknown]
  - Urinary tract infection [Unknown]
